FAERS Safety Report 4552046-0 (Version None)
Quarter: 2005Q1

REPORT INFORMATION
  Report Type: 
  Country: None (occurrence: None)
  Receive Date: 20050112
  Receipt Date: 20050104
  Transmission Date: 20050727
  Serious: Yes (Other)
  Sender: FDA-Public Use
  Company Number: 2005004489

PATIENT
  Age: 75 Year
  Sex: Female

DRUGS (6)
  1. LIPITOR [Suspect]
     Indication: CARDIAC FAILURE CONGESTIVE
     Dosage: 10 MG (10 MG, 1 IN 1 D), ORAL
     Route: 048
     Dates: start: 20030517, end: 20040723
  2. LISINOPRIL [Concomitant]
  3. METOPROLOL SUCCINATE (METOPROLOL SUCINATE) [Concomitant]
  4. PANTOPRAZOLE (PANTOPRAZOLE) [Concomitant]
  5. LORAZEPAM [Concomitant]
  6. DYAZIDE [Concomitant]

REACTIONS (6)
  - ASTHENIA [None]
  - EXERCISE TOLERANCE DECREASED [None]
  - EYE HAEMORRHAGE [None]
  - FATIGUE [None]
  - TEMPORAL ARTERITIS [None]
  - WEIGHT DECREASED [None]
